FAERS Safety Report 6255088-2 (Version None)
Quarter: 2009Q3

REPORT INFORMATION
  Report Type: 
  Country: None (occurrence: None)
  Receive Date: 20090702
  Receipt Date: 20090625
  Transmission Date: 20100115
  Serious: Yes (Hospitalization)
  Sender: FDA-Public Use
  Company Number: US-JNJFOC-20090609394

PATIENT
  Sex: Male
  Weight: 41.2 kg

DRUGS (8)
  1. INFLIXIMAB [Suspect]
     Indication: INFLAMMATORY BOWEL DISEASE
     Route: 042
  2. PREDNISONE [Concomitant]
     Indication: INFLAMMATORY BOWEL DISEASE
  3. 5-AMINOSALICYLIC ACID [Concomitant]
     Indication: INFLAMMATORY BOWEL DISEASE
     Route: 048
  4. METHOTREXATE [Concomitant]
     Indication: INFLAMMATORY BOWEL DISEASE
  5. FOLIC ACID [Concomitant]
  6. CALCIUM [Concomitant]
  7. VITAMIN D [Concomitant]
  8. ZANTAC [Concomitant]

REACTIONS (1)
  - COLITIS [None]
